FAERS Safety Report 23346708 (Version 1)
Quarter: 2023Q4

REPORT INFORMATION
  Report Type: Spontaneous
  Country: CH (occurrence: CH)
  Receive Date: 20231228
  Receipt Date: 20231228
  Transmission Date: 20240109
  Serious: Yes (Other)
  Sender: FDA-Public Use
  Company Number: None

PATIENT
  Age: 77 Year
  Sex: Male

DRUGS (9)
  1. ATORVASTATIN CALCIUM\EZETIMIBE [Suspect]
     Active Substance: ATORVASTATIN CALCIUM\EZETIMIBE
     Dosage: QD
     Dates: start: 20230401, end: 20231025
  2. DAFALGAN [Suspect]
     Active Substance: ACETAMINOPHEN
     Dosage: 1 GRAM, Q6H
     Dates: end: 20231023
  3. XARELTO [Suspect]
     Active Substance: RIVAROXABAN
     Dosage: UNTIL FULL WEIGHT BEARING
  4. CEFUROXIME [Suspect]
     Active Substance: CEFUROXIME
     Dosage: BETWEEN 18.10.2023 AND 22.10.2023
     Route: 042
  5. CELEBREX [Suspect]
     Active Substance: CELECOXIB
     Dosage: 200 MILLIGRAM, Q12H
  6. ASPIRIN [Concomitant]
     Active Substance: ASPIRIN
     Dosage: 100 MILLIGRAM, QD
     Dates: start: 20160319
  7. METOPROLOL SUCCINATE [Concomitant]
     Active Substance: METOPROLOL SUCCINATE
     Dosage: 25 MILLIGRAM, QD
     Dates: start: 20181026
  8. TAMSULOSIN HYDROCHLORIDE [Concomitant]
     Active Substance: TAMSULOSIN HYDROCHLORIDE
     Dosage: 40 MICROGRAM, QD
     Dates: start: 20171218, end: 20231025
  9. GINKGO [Concomitant]
     Active Substance: GINKGO
     Dosage: 240 MILLIGRAM, QD
     Dates: start: 20220920, end: 20231025

REACTIONS (1)
  - Drug-induced liver injury [Recovering/Resolving]

NARRATIVE: CASE EVENT DATE: 20231023
